FAERS Safety Report 9198640 (Version 3)
Quarter: 2013Q2

REPORT INFORMATION
  Report Type: Spontaneous
  Country: US (occurrence: US)
  Receive Date: 20130329
  Receipt Date: 20130522
  Transmission Date: 20140414
  Serious: Yes (Hospitalization, Other)
  Sender: FDA-Public Use
  Company Number: US-JNJFOC-20130312161

PATIENT
  Age: 74 Year
  Sex: Male

DRUGS (14)
  1. XARELTO [Suspect]
     Indication: PROPHYLAXIS
     Route: 048
     Dates: start: 20121128, end: 20130105
  2. XARELTO [Suspect]
     Indication: CEREBROVASCULAR ACCIDENT PROPHYLAXIS
     Route: 048
     Dates: start: 20121128, end: 20130105
  3. XARELTO [Suspect]
     Indication: ATRIAL FIBRILLATION
     Route: 048
     Dates: start: 20121128, end: 20130105
  4. CLOPIDOGREL [Concomitant]
     Indication: ATRIAL FIBRILLATION
     Route: 065
  5. CLOPIDOGREL [Concomitant]
     Indication: CORONARY ARTERY DISEASE
     Route: 065
  6. ASPIRIN [Concomitant]
     Route: 065
  7. AMIODARONE [Concomitant]
     Indication: ATRIAL FIBRILLATION
     Route: 065
  8. FUROSEMIDE [Concomitant]
     Route: 065
  9. SPIRONOLACTONE [Concomitant]
     Route: 065
  10. CARVEDILOL [Concomitant]
     Route: 065
  11. LISINOPRIL [Concomitant]
     Indication: CORONARY ARTERY DISEASE
     Route: 065
  12. PLAVIX [Concomitant]
     Indication: ACUTE MYOCARDIAL INFARCTION
     Route: 065
  13. PLAVIX [Concomitant]
     Indication: CORONARY ARTERY DISEASE
     Route: 065
  14. SIMVASTATIN [Concomitant]
     Indication: DYSLIPIDAEMIA
     Route: 065

REACTIONS (3)
  - Embolism arterial [Recovered/Resolved]
  - Renal impairment [Recovered/Resolved]
  - Vascular pseudoaneurysm [Recovered/Resolved]
